FAERS Safety Report 4502316-7 (Version None)
Quarter: 2004Q4

REPORT INFORMATION
  Report Type: 
  Country: None (occurrence: None)
  Receive Date: 20041116
  Receipt Date: 20040915
  Transmission Date: 20050328
  Serious: Yes (Other)
  Sender: FDA-Public Use
  Company Number: GB-GLAXOSMITHKLINE-B0345488A

PATIENT
  Age: 18 Month
  Sex: Male
  Weight: 13.6 kg

DRUGS (1)
  1. LAMICTAL [Suspect]
     Dosage: 100MG UNKNOWN

REACTIONS (2)
  - DEAFNESS NEUROSENSORY [None]
  - DRUG EXPOSURE DURING PREGNANCY [None]
